FAERS Safety Report 10560539 (Version 2)
Quarter: 2015Q4

REPORT INFORMATION
  Report Type: Spontaneous
  Country: US (occurrence: US)
  Receive Date: 20141103
  Receipt Date: 20151015
  Transmission Date: 20160304
  Serious: No
  Sender: FDA-Public Use
  Company Number: US-SA-2014SA080294

PATIENT
  Age: 42 Year
  Sex: Male
  Weight: 61.9 kg

DRUGS (6)
  1. TUMS [Concomitant]
     Active Substance: CALCIUM CARBONATE
     Dates: start: 20131017
  2. VITAMIN D3 [Concomitant]
     Active Substance: CHOLECALCIFEROL
     Dates: start: 20131017
  3. PERIACTIN [Concomitant]
     Active Substance: CYPROHEPTADINE HYDROCHLORIDE
     Dosage: 2 MG/5ML-10 ML BID
     Dates: start: 20141006
  4. WELLBUTRIN [Concomitant]
     Active Substance: BUPROPION HYDROCHLORIDE
     Route: 048
     Dates: start: 20131017
  5. CHLORDIAZEPOXIDE/CLIDINIUM BROMIDE [Concomitant]
     Dosage: Q8
     Dates: start: 20131017
  6. LUMIZYME [Suspect]
     Active Substance: ALGLUCOSIDASE ALFA
     Indication: GLYCOGEN STORAGE DISEASE TYPE II
     Route: 041
     Dates: start: 20140616

REACTIONS (2)
  - Restlessness [Recovered/Resolved]
  - Discomfort [Recovered/Resolved]
